FAERS Safety Report 8813065 (Version 1)
Quarter: 2012Q4

REPORT INFORMATION
  Report Type: 
  Country: US (occurrence: US)
  Receive Date: 20120927
  Receipt Date: 20120927
  Transmission Date: 20130627
  Serious: Yes (Other)
  Sender: FDA-Public Use
  Company Number: US-JNJFOC-20120908387

PATIENT

DRUGS (4)
  1. CLADRIBINE [Suspect]
     Indication: LANGERHANS^ CELL HISTIOCYTOSIS
     Dosage: daily for 5 days, repeated monthly for 6 months
     Route: 065
  2. VINBLASTINE [Suspect]
     Indication: LANGERHANS^ CELL HISTIOCYTOSIS
     Dosage: weekly for 6 weeks, if good response then every 3 weeks for 1 year
     Route: 065
  3. PREDNISONE [Suspect]
     Indication: LANGERHANS^ CELL HISTIOCYTOSIS
     Dosage: daily for 4 weeks then tapering over 2 weeks and as a pulse daily for 5 days every 3 weeks
     Route: 065
  4. ARA-C [Suspect]
     Indication: LANGERHANS^ CELL HISTIOCYTOSIS
     Dosage: daily for 5 days, repeated monthly for 6 months
     Route: 041

REACTIONS (4)
  - Haematotoxicity [Unknown]
  - Pancytopenia [Unknown]
  - Drug ineffective [Unknown]
  - Toxicity to various agents [Unknown]
